FAERS Safety Report 6085502-7 (Version None)
Quarter: 2009Q1

REPORT INFORMATION
  Report Type: 
  Country: None (occurrence: None)
  Receive Date: 20090220
  Receipt Date: 20090218
  Transmission Date: 20090719
  Serious: Yes (Hospitalization, Disabling)
  Sender: FDA-Public Use
  Company Number: CH-BRISTOL-MYERS SQUIBB COMPANY-14509731

PATIENT
  Age: 57 Year
  Sex: Male
  Weight: 65 kg

DRUGS (2)
  1. CARBOPLATIN [Suspect]
     Indication: MALIGNANT MELANOMA
     Dosage: 1 DF = 5 MICROGRAM/ML
     Route: 042
     Dates: start: 20081110, end: 20081110
  2. PACLITAXEL [Suspect]
     Indication: MALIGNANT MELANOMA
     Route: 042
     Dates: start: 20081110, end: 20081110

REACTIONS (2)
  - PNEUMOTHORAX [None]
  - RASH [None]
